FAERS Safety Report 6090006-1 (Version None)
Quarter: 2009Q1

REPORT INFORMATION
  Report Type: 
  Country: None (occurrence: None)
  Receive Date: 20090220
  Receipt Date: 20090208
  Transmission Date: 20090719
  Serious: No
  Sender: FDA-Public Use
  Company Number: SPI200900045

PATIENT
  Age: 54 Year
  Sex: Female
  Weight: 59 kg

DRUGS (1)
  1. AMITIZA [Suspect]
     Indication: IRRITABLE BOWEL SYNDROME
     Dosage: 24 MCG, QD, ORAL
     Route: 048

REACTIONS (1)
  - DYSPNOEA [None]
